FAERS Safety Report 7552341-7 (Version None)
Quarter: 2011Q2

REPORT INFORMATION
  Report Type: 
  Country: None (occurrence: None)
  Receive Date: 20110616
  Receipt Date: 20071128
  Transmission Date: 20111010
  Serious: Yes (Death, Hospitalization, Other)
  Sender: FDA-Public Use
  Company Number: PHHO2007VE04839

PATIENT
  Sex: Female

DRUGS (1)
  1. EXFORGE [Suspect]
     Indication: HYPERTENSION
     Dosage: 80 MG OF VALS /5 MG OF AMLO / DAY
     Route: 048
     Dates: start: 20070101

REACTIONS (1)
  - MYOCARDIAL INFARCTION [None]
